FAERS Safety Report 8651723 (Version 3)
Quarter: 2013Q1

REPORT INFORMATION
  Report Type: Spontaneous
  Country: NL (occurrence: NL)
  Receive Date: 20120706
  Receipt Date: 20130103
  Transmission Date: 20140127
  Serious: Yes (Death, Hospitalization)
  Sender: FDA-Public Use
  Company Number: PHHY2012NL057461

PATIENT
  Age: 68 Year
  Sex: Male

DRUGS (5)
  1. ZOMETA [Suspect]
     Indication: PROSTATE CANCER METASTATIC
     Dosage: 4 MG/100 ML, ONCE PER 28 DAYS
  2. ZOMETA [Suspect]
     Dosage: 4 MG/100 ML, ONCE PER 28 DAYS
     Dates: start: 20120605
  3. ZOMETA [Suspect]
     Dosage: 4 MG/100 ML, ONCE PER 28 DAYS
     Dates: start: 20120704
  4. PERINDOPRIL [Concomitant]
     Dosage: 8 1X1
  5. HYDROCHLOROTHIAZIDE [Concomitant]
     Dosage: 12.5 1X1

REACTIONS (4)
  - Rectal haemorrhage [Fatal]
  - Metastasis [Fatal]
  - Rectal fissure [Recovered/Resolved]
  - Haematochezia [Recovered/Resolved]
